FAERS Safety Report 18109791 (Version 2)
Quarter: 2020Q3

REPORT INFORMATION
  Report Type: Spontaneous
  Country: CN (occurrence: CN)
  Receive Date: 20200804
  Receipt Date: 20200817
  Transmission Date: 20201103
  Serious: Yes (Hospitalization, Other)
  Sender: FDA-Public Use
  Company Number: CN-009507513-2008CHN000214

PATIENT
  Age: 45 Year
  Sex: Female
  Weight: 67 kg

DRUGS (3)
  1. CISPLATIN. [Concomitant]
     Active Substance: CISPLATIN
     Dosage: 60 MG (ALSO REPORTED AS 120 MG) ON DAY2 (75 MG/M2) ON DAY1, EVERY 21 DAYS
     Dates: start: 20190105, end: 20190308
  2. KEYTRUDA [Suspect]
     Active Substance: PEMBROLIZUMAB
     Indication: NEOPLASM MALIGNANT
     Dosage: 200 MILLIGRAM, EVERY 21 DAYS (Q21D)
     Route: 041
     Dates: start: 20190105, end: 20190801
  3. PACLITAXEL. [Concomitant]
     Active Substance: PACLITAXEL
     Dosage: 135 MG/M2, EVERY 21 DAYS
     Dates: start: 20190105, end: 20190308

REACTIONS (4)
  - Palpitations [Recovering/Resolving]
  - Immune-mediated myocarditis [Recovering/Resolving]
  - Myocardial necrosis marker increased [Recovering/Resolving]
  - Chest discomfort [Recovering/Resolving]

NARRATIVE: CASE EVENT DATE: 201908
